FAERS Safety Report 7237956-8 (Version None)
Quarter: 2011Q1

REPORT INFORMATION
  Report Type: 
  Country: None (occurrence: None)
  Receive Date: 20110119
  Receipt Date: 20110119
  Transmission Date: 20110831
  Serious: No
  Sender: FDA-Public Use
  Company Number: None

PATIENT
  Age: 31 Year
  Sex: Female
  Weight: 70.3075 kg

DRUGS (1)
  1. ALCOHOL PREP PADS, MEDIUM 70% ISOPROPYL ALCOHOL, V/V TRIAD [Suspect]
     Dosage: 1 PAD ONCE TOP
     Route: 061
     Dates: start: 20110108, end: 20110108

REACTIONS (2)
  - VOMITING PROJECTILE [None]
  - DIARRHOEA [None]
